FAERS Safety Report 23096807 (Version 1)
Quarter: 2023Q4

REPORT INFORMATION
  Report Type: Spontaneous
  Country: JP (occurrence: JP)
  Receive Date: 20231023
  Receipt Date: 20231023
  Transmission Date: 20240109
  Serious: Yes (Hospitalization)
  Sender: FDA-Public Use
  Company Number: JP-Teva Takeda Yakuhin-2023-JP-002326J

PATIENT
  Age: 12 Year
  Sex: Male
  Weight: 35 kg

DRUGS (5)
  1. PREDNISOLONE [Suspect]
     Active Substance: PREDNISOLONE
     Indication: IgA nephropathy
     Dosage: 60 MILLIGRAM DAILY; STRENGTH: 5 MG, UNIT DOSE: 20 MG
     Route: 048
     Dates: start: 20230904, end: 20231004
  2. MIZORIBINE [Suspect]
     Active Substance: MIZORIBINE
     Indication: IgA nephropathy
     Dosage: 100 MILLIGRAM DAILY;
     Route: 065
     Dates: start: 20230904, end: 20230911
  3. MIZORIBINE [Suspect]
     Active Substance: MIZORIBINE
     Dosage: 200 MILLIGRAM DAILY;
     Route: 065
     Dates: start: 20230912, end: 20231005
  4. IMIDAPRIL HYDROCHLORIDE [Concomitant]
     Active Substance: IMIDAPRIL HYDROCHLORIDE
     Indication: Product used for unknown indication
     Dosage: 1.5 MILLIGRAM DAILY;
     Route: 048
  5. LEVOTHYROXINE [Concomitant]
     Active Substance: LEVOTHYROXINE
     Indication: Congenital hypothyroidism
     Dosage: 0.4 GRAM
     Route: 048

REACTIONS (1)
  - Duodenal ulcer perforation [Recovering/Resolving]

NARRATIVE: CASE EVENT DATE: 20231004
